FAERS Safety Report 4998762-8 (Version None)
Quarter: 2006Q2

REPORT INFORMATION
  Report Type: 
  Country: None (occurrence: None)
  Receive Date: 20060509
  Receipt Date: 20060426
  Transmission Date: 20061013
  Serious: Yes (Other)
  Sender: FDA-Public Use
  Company Number: 2006057175

PATIENT
  Age: 53 Year
  Sex: Female
  Weight: 72.5755 kg

DRUGS (5)
  1. ZITHROMAX [Suspect]
     Indication: NASOPHARYNGITIS
     Dosage: 500 MG (250 MG, 1 IN 1 D), ORAL
     Dates: start: 20060331, end: 20060402
  2. PREMPHASE (PREMARIN;CYCRIN 14/14) [Concomitant]
  3. CALCIUM (CALCIUM) [Concomitant]
  4. ASPIRIN [Concomitant]
  5. CLARITIN [Concomitant]

REACTIONS (8)
  - BURNING SENSATION [None]
  - FEELING HOT [None]
  - IMPAIRED WORK ABILITY [None]
  - PARAESTHESIA [None]
  - RASH PRURITIC [None]
  - SERUM SICKNESS [None]
  - TYPE III IMMUNE COMPLEX MEDIATED REACTION [None]
  - URTICARIA [None]
